FAERS Safety Report 14021347 (Version 2)
Quarter: 2017Q4

REPORT INFORMATION
  Report Type: Spontaneous
  Country: US (occurrence: US)
  Receive Date: 20170928
  Receipt Date: 20171206
  Transmission Date: 20180321
  Serious: Yes (Death, Hospitalization)
  Sender: FDA-Public Use
  Company Number: US-ELI_LILLY_AND_COMPANY-US201709008646

PATIENT
  Sex: Female
  Weight: 31.75 kg

DRUGS (3)
  1. METHADONE [Concomitant]
     Active Substance: METHADONE HYDROCHLORIDE
     Indication: PAIN
     Dosage: UNK, UNKNOWN
     Route: 065
  2. AVASTIN [Concomitant]
     Active Substance: BEVACIZUMAB
     Indication: OVARIAN CANCER STAGE IV
     Dosage: UNK, UNKNOWN
     Route: 065
     Dates: start: 20170117
  3. ALIMTA [Suspect]
     Active Substance: PEMETREXED DISODIUM
     Indication: OVARIAN CANCER STAGE IV
     Dosage: UNK, UNKNOWN
     Route: 065
     Dates: start: 20170117, end: 201706

REACTIONS (5)
  - Hypophagia [Fatal]
  - Ulcer [Fatal]
  - Malignant neoplasm progression [Fatal]
  - Off label use [Unknown]
  - Weight decreased [Fatal]
